FAERS Safety Report 5373709-3 (Version None)
Quarter: 2007Q2

REPORT INFORMATION
  Report Type: 
  Country: None (occurrence: None)
  Receive Date: 20070628
  Receipt Date: 20070626
  Transmission Date: 20071010
  Serious: Yes (Hospitalization)
  Sender: FDA-Public Use
  Company Number: ITWYE917026JUN07

PATIENT
  Sex: Male

DRUGS (3)
  1. TAZOCIN [Suspect]
     Indication: LUNG ABSCESS
     Route: 042
     Dates: start: 20070110, end: 20070129
  2. TEICOPLANIN [Concomitant]
     Dosage: 400 MG
  3. ERTAPENEM [Concomitant]
     Dosage: 1 G

REACTIONS (2)
  - ERYTHEMA [None]
  - PYREXIA [None]
